FAERS Safety Report 23527737 (Version 2)
Quarter: 2025Q3

REPORT INFORMATION
  Report Type: Spontaneous
  Country: EU (occurrence: EU)
  Receive Date: 20240215
  Receipt Date: 20250910
  Transmission Date: 20251021
  Serious: Yes (Other)
  Sender: HILL DERMACEUTICALS, INC.
  Company Number: EU-Hill Dermaceuticals, Inc.-2153239

PATIENT
  Sex: Female

DRUGS (1)
  1. TOLAK [Suspect]
     Active Substance: FLUOROURACIL
     Indication: Skin lesion
     Dates: start: 20231025, end: 20231120

REACTIONS (3)
  - Skin reaction [Unknown]
  - Allergic reaction to excipient [Unknown]
  - Documented hypersensitivity to administered product [Unknown]

NARRATIVE: CASE EVENT DATE: 20231114
